FAERS Safety Report 23667055 (Version 1)
Quarter: 2024Q1

REPORT INFORMATION
  Report Type: Spontaneous
  Country: US (occurrence: US)
  Receive Date: 20240325
  Receipt Date: 20240325
  Transmission Date: 20240409
  Serious: Yes (Hospitalization)
  Sender: FDA-Public Use
  Company Number: US-ROCHE-3521794

PATIENT
  Age: 64 Year
  Sex: Female

DRUGS (2)
  1. CLONAZEPAM [Suspect]
     Active Substance: CLONAZEPAM
     Indication: Hypertension
  2. XOLAIR [Suspect]
     Active Substance: OMALIZUMAB
     Indication: Urticaria
     Dosage: PRE-FILLED SYRINGE
     Route: 042
     Dates: start: 20240104

REACTIONS (8)
  - Uveitis [Unknown]
  - Nasal congestion [Unknown]
  - Dyspnoea [Unknown]
  - Productive cough [Unknown]
  - Dyspnoea exertional [Unknown]
  - Infection [Unknown]
  - Hepatic enzyme increased [Unknown]
  - Off label use [Unknown]
